FAERS Safety Report 10300518 (Version 4)
Quarter: 2014Q3

REPORT INFORMATION
  Report Type: Report from Study
  Country: US (occurrence: US)
  Receive Date: 20140713
  Receipt Date: 20140828
  Transmission Date: 20150326
  Serious: Yes (Hospitalization)
  Sender: FDA-Public Use
  Company Number: US-BRISTOL-MYERS SQUIBB COMPANY-21170428

PATIENT
  Age: 50 Year
  Sex: Female
  Weight: 79.6 kg

DRUGS (21)
  1. TRIAMCINOLONE [Concomitant]
     Active Substance: TRIAMCINOLONE
     Indication: RASH
     Route: 061
     Dates: start: 20140418
  2. OXYCODONE [Concomitant]
     Active Substance: OXYCODONE
     Dates: start: 20140513
  3. PHENERGAN [Concomitant]
     Active Substance: PROMETHAZINE HYDROCHLORIDE
  4. ATIVAN [Concomitant]
     Active Substance: LORAZEPAM
     Dosage: 1 DF:275 UNIT NOS?02JUL-02JUL14?03JUL-ONG
     Dates: start: 20140702
  5. OMEPRAZOLE. [Concomitant]
     Active Substance: OMEPRAZOLE
     Route: 048
     Dates: start: 20130701
  6. HEPARIN FLUSH [Concomitant]
  7. NIVOLUMAB [Suspect]
     Active Substance: NIVOLUMAB
     Indication: METASTATIC MALIGNANT MELANOMA
     Dosage: 01OCT13-10DEC13?RESTARTED:18MAR14?LAST DOSE:10JUN14
     Route: 042
     Dates: start: 20131001
  8. AMBIEN [Concomitant]
     Active Substance: ZOLPIDEM TARTRATE
     Dates: start: 20140529
  9. IPILIMUMAB [Suspect]
     Active Substance: IPILIMUMAB
     Indication: METASTATIC MALIGNANT MELANOMA
     Dosage: INTERRUPTED:25FEB14
     Route: 042
     Dates: start: 20131223
  10. GABAPENTIN. [Concomitant]
     Active Substance: GABAPENTIN
     Dosage: 26APR-13MAY14?18MAY-CONT
     Dates: start: 20140518
  11. SODIUM CHLORIDE. [Concomitant]
     Active Substance: SODIUM CHLORIDE
  12. FISH OIL [Concomitant]
     Active Substance: FISH OIL
     Dates: start: 20131201
  13. HYDROXYZINE [Concomitant]
     Active Substance: HYDROXYZINE\HYDROXYZINE HYDROCHLORIDE
     Dates: start: 20140225
  14. ESTRADIOL. [Concomitant]
     Active Substance: ESTRADIOL
     Route: 048
     Dates: start: 20130601
  15. IBUPROFEN. [Concomitant]
     Active Substance: IBUPROFEN
     Dates: start: 20131009
  16. FUROSEMIDE. [Concomitant]
     Active Substance: FUROSEMIDE
  17. LEVOTHYROXIN [Concomitant]
     Active Substance: LEVOTHYROXINE
     Dosage: 17APR-20APR14?15JUL10-25MAR14?02JUL-03JUL14?03JUN-CONT?14MAY-02JUN14?20APR-13MAY14
     Route: 048
     Dates: start: 20140417
  18. COSYNTROPIN. [Concomitant]
     Active Substance: COSYNTROPIN
  19. OXCARBAZEPINE. [Concomitant]
     Active Substance: OXCARBAZEPINE
     Dates: start: 20090715
  20. BENADRYL [Concomitant]
     Active Substance: DIPHENHYDRAMINE HYDROCHLORIDE
     Dates: start: 20140114
  21. FLEXERIL [Concomitant]
     Active Substance: CYCLOBENZAPRINE HYDROCHLORIDE
     Route: 048

REACTIONS (2)
  - Cardiac failure [Recovered/Resolved]
  - Adrenal insufficiency [Not Recovered/Not Resolved]

NARRATIVE: CASE EVENT DATE: 20140703
